FAERS Safety Report 10762875 (Version 1)
Quarter: 2015Q1

REPORT INFORMATION
  Report Type: Spontaneous
  Country: IT (occurrence: IT)
  Receive Date: 20150204
  Receipt Date: 20150204
  Transmission Date: 20150721
  Serious: Yes (Other)
  Sender: FDA-Public Use
  Company Number: IT-ELI_LILLY_AND_COMPANY-IT201408009886

PATIENT
  Age: 31 Year
  Sex: Male
  Weight: 84 kg

DRUGS (6)
  1. LANTUS [Suspect]
     Active Substance: INSULIN GLARGINE
     Indication: TYPE 1 DIABETES MELLITUS
     Dosage: 16 DF, QD
     Route: 058
     Dates: start: 20040315
  2. HUMALOG [Suspect]
     Active Substance: INSULIN LISPRO
     Indication: TYPE 1 DIABETES MELLITUS
     Dosage: 36 DF, QD
     Route: 058
     Dates: start: 20010926
  3. PROVISACOR [Concomitant]
     Active Substance: ROSUVASTATIN
     Dosage: 10 MG, UNK
     Route: 048
     Dates: start: 20080909
  4. HUMALOG [Suspect]
     Active Substance: INSULIN LISPRO
     Dosage: 24 DF, QD
     Route: 058
  5. LANTUS [Suspect]
     Active Substance: INSULIN GLARGINE
     Dosage: 15 DF, QD
     Route: 058
  6. SIMVASTATIN. [Concomitant]
     Active Substance: SIMVASTATIN
     Dosage: 10 MG, UNK
     Route: 048
     Dates: start: 20140322

REACTIONS (4)
  - Hypoglycaemia [Unknown]
  - Hypoglycaemic seizure [Unknown]
  - Dysphagia [Unknown]
  - Hypoglycaemia [Unknown]

NARRATIVE: CASE EVENT DATE: 20080909
